FAERS Safety Report 16690700 (Version 1)
Quarter: 2019Q3

REPORT INFORMATION
  Report Type: Spontaneous
  Country: GB (occurrence: GB)
  Receive Date: 20190811
  Receipt Date: 20190811
  Transmission Date: 20191004
  Serious: Yes (Life-Threatening, Hospitalization)
  Sender: FDA-Public Use
  Company Number: PHHY2019GB186009

PATIENT
  Age: 23 Year
  Sex: Male
  Weight: 63.5 kg

DRUGS (1)
  1. ADALIMUMAB [Suspect]
     Active Substance: ADALIMUMAB
     Indication: CROHN^S DISEASE
     Dosage: 40 MG, QW
     Route: 058

REACTIONS (4)
  - Cerebral infarction [Unknown]
  - Aphasia [Unknown]
  - Hemiparesis [Recovered/Resolved with Sequelae]
  - Embolism [Recovering/Resolving]

NARRATIVE: CASE EVENT DATE: 201907
